FAERS Safety Report 4385402-4 (Version None)
Quarter: 2004Q2

REPORT INFORMATION
  Report Type: 
  Country: None (occurrence: None)
  Receive Date: 20040622
  Receipt Date: 20040608
  Transmission Date: 20050107
  Serious: Yes (Hospitalization)
  Sender: FDA-Public Use
  Company Number: F03200400062

PATIENT
  Age: 69 Year
  Sex: Male
  Weight: 111.9 kg

DRUGS (11)
  1. ELOXATIN [Suspect]
     Indication: NON-HODGKIN'S LYMPHOMA
     Dosage: 130 MG/M2 OTHER - INTRAVENOUS NOS
     Route: 042
     Dates: start: 20040520, end: 20040520
  2. GEMCITABINE -SOLUTION - 2300 MG [Suspect]
     Indication: NON-HODGKIN'S LYMPHOMA
     Dosage: 1000 MG/M2 ON DAY 1 AND DAY 8 -INTRAVENOUS NOS
     Route: 042
     Dates: start: 20040415, end: 20040520
  3. DEXAMETHASONE [Suspect]
     Dosage: 40 MG ONCE -INTRAVENOUS NOS
     Route: 042
     Dates: start: 20040520, end: 20040520
  4. DEXAMETHASONE TAB [Suspect]
     Dosage: 40 MG ONCE -ORAL
     Route: 048
     Dates: start: 20040521, end: 20040521
  5. AMLLODIPINE + BENAZEPRIL HYDROCHLORIDE [Concomitant]
  6. METOPROLOL SUCCINATE [Concomitant]
  7. GLYBURIDE [Concomitant]
  8. INSULIN [Concomitant]
  9. CIPROFLOXACIN [Concomitant]
  10. ALBUTEROL [Concomitant]
  11. GUAIFENESIN + CODEINE [Concomitant]

REACTIONS (12)
  - ASTHENIA [None]
  - COUGH [None]
  - DYSPNOEA [None]
  - DYSPNOEA EXERTIONAL [None]
  - FATIGUE [None]
  - HAEMATOCRIT DECREASED [None]
  - HAEMOGLOBIN DECREASED [None]
  - NEUTROPENIA [None]
  - PYREXIA [None]
  - RENAL FAILURE ACUTE [None]
  - THROMBOCYTOPENIA [None]
  - WHEEZING [None]
